FAERS Safety Report 24718551 (Version 1)
Quarter: 2024Q4

REPORT INFORMATION
  Report Type: Spontaneous
  Country: US (occurrence: None)
  Receive Date: 20241210
  Receipt Date: 20241210
  Transmission Date: 20250115
  Serious: Yes (Hospitalization)
  Sender: Public
  Company Number: None

PATIENT
  Age: 58 Year
  Sex: Male
  Weight: 75 kg

DRUGS (1)
  1. INFLIXIMAB-ABDA [Suspect]
     Active Substance: INFLIXIMAB-ABDA
     Dosage: OTHER FREQUENCY : OTHER;?
     Route: 042

REACTIONS (2)
  - Erythema nodosum [None]
  - Therapy change [None]

NARRATIVE: CASE EVENT DATE: 20211020
